FAERS Safety Report 4597302-5 (Version None)
Quarter: 2005Q1

REPORT INFORMATION
  Report Type: 
  Country: None (occurrence: None)
  Receive Date: 20050303
  Receipt Date: 20050224
  Transmission Date: 20050727
  Serious: Yes (Hospitalization)
  Sender: FDA-Public Use
  Company Number: 200511498US

PATIENT
  Sex: Male

DRUGS (5)
  1. LANTUS [Suspect]
     Indication: DIABETES MELLITUS INSULIN-DEPENDENT
     Dosage: DOSE UNIT: UNITS
     Route: 058
     Dates: start: 20030101
  2. HUMALOG [Concomitant]
     Dosage: DOSE: SLIDING SCALE
  3. REGLAN [Concomitant]
     Dosage: FREQUENCY: BEFORE MEALS
  4. PREVACID [Concomitant]
  5. ALTACE [Concomitant]

REACTIONS (8)
  - DEHYDRATION [None]
  - DIARRHOEA [None]
  - GASTROOESOPHAGEAL REFLUX DISEASE [None]
  - IMPAIRED GASTRIC EMPTYING [None]
  - IMPAIRED WORK ABILITY [None]
  - ORGAN FAILURE [None]
  - STAPHYLOCOCCAL INFECTION [None]
  - VOMITING [None]
